FAERS Safety Report 4377038-6 (Version None)
Quarter: 2004Q2

REPORT INFORMATION
  Report Type: 
  Country: None (occurrence: None)
  Receive Date: 20040614
  Receipt Date: 20040602
  Transmission Date: 20050107
  Serious: Yes (Other)
  Sender: FDA-Public Use
  Company Number: GB-GLAXOSMITHKLINE-B0334989A

PATIENT
  Sex: Female

DRUGS (3)
  1. RETROVIR [Suspect]
     Indication: HIV INFECTION
     Dosage: 250MG TWICE PER DAY
     Route: 048
     Dates: start: 20010801
  2. DDI [Concomitant]
     Route: 065
  3. NEVIRAPINE [Concomitant]
     Route: 065

REACTIONS (2)
  - HAEMATEMESIS [None]
  - PORTAL VEIN THROMBOSIS [None]
